FAERS Safety Report 25242277 (Version 2)
Quarter: 2025Q2

REPORT INFORMATION
  Report Type: Spontaneous
  Country: US (occurrence: US)
  Receive Date: 20250426
  Receipt Date: 20250506
  Transmission Date: 20250716
  Serious: No
  Sender: ELI LILLY AND COMPANY
  Company Number: US-ELI_LILLY_AND_COMPANY-US202504016317

PATIENT
  Age: 68 Year
  Sex: Female

DRUGS (1)
  1. ZEPBOUND [Suspect]
     Active Substance: TIRZEPATIDE
     Indication: Weight control
     Route: 065
     Dates: start: 20250331, end: 20250407

REACTIONS (13)
  - Muscle spasms [Unknown]
  - Brain fog [Unknown]
  - Decreased appetite [Unknown]
  - Insomnia [Unknown]
  - Sleep disorder due to general medical condition, insomnia type [Unknown]
  - Asthenia [Unknown]
  - Abdominal pain upper [Unknown]
  - Vomiting [Unknown]
  - Nausea [Not Recovered/Not Resolved]
  - Fatigue [Unknown]
  - Gastrooesophageal reflux disease [Unknown]
  - Dehydration [Unknown]
  - Constipation [Unknown]

NARRATIVE: CASE EVENT DATE: 20250331
